FAERS Safety Report 5314519-2 (Version None)
Quarter: 2007Q2

REPORT INFORMATION
  Report Type: 
  Country: None (occurrence: None)
  Receive Date: 20070501
  Receipt Date: 20070501
  Transmission Date: 20071010
  Serious: Yes (Death, Hospitalization)
  Sender: FDA-Public Use
  Company Number: None

PATIENT
  Age: 37 Year
  Sex: Female
  Weight: 70 kg

DRUGS (1)
  1. IFEX [Suspect]
     Indication: NEOPLASM MALIGNANT
     Dates: start: 20061031, end: 20061102

REACTIONS (15)
  - ANAEMIA [None]
  - CIRCULATORY COLLAPSE [None]
  - CONVERSION DISORDER [None]
  - DISCOMFORT [None]
  - HYPOALBUMINAEMIA [None]
  - ILL-DEFINED DISORDER [None]
  - LETHARGY [None]
  - LOSS OF CONSCIOUSNESS [None]
  - MENTAL STATUS CHANGES [None]
  - NEUROTOXICITY [None]
  - PLEURAL EFFUSION [None]
  - RESPIRATORY FAILURE [None]
  - SOMNOLENCE [None]
  - TACHYCARDIA [None]
  - TOXIC INDUCED ENCEPHALOPATHY [None]
